FAERS Safety Report 9288965 (Version 3)
Quarter: 2013Q2

REPORT INFORMATION
  Report Type: Report from Study
  Country: JP (occurrence: JP)
  Receive Date: 20130514
  Receipt Date: 20130607
  Transmission Date: 20140414
  Serious: No
  Sender: FDA-Public Use
  Company Number: JP-GLAXOSMITHKLINE-B0891195A

PATIENT
  Age: 84 Year
  Sex: Female
  Weight: 31 kg

DRUGS (4)
  1. REVOLADE [Suspect]
     Indication: IDIOPATHIC THROMBOCYTOPENIC PURPURA
     Route: 048
     Dates: start: 20121023, end: 20130117
  2. PREDNISOLONE [Concomitant]
     Indication: IDIOPATHIC THROMBOCYTOPENIC PURPURA
     Route: 048
     Dates: end: 20121110
  3. FUROSEMIDE [Concomitant]
     Indication: CARDIAC FAILURE
     Route: 048
  4. ALDACTONE A [Concomitant]
     Indication: CARDIAC FAILURE
     Route: 048

REACTIONS (3)
  - Generalised oedema [Recovered/Resolved]
  - Vomiting [Recovering/Resolving]
  - Nausea [Recovering/Resolving]
